FAERS Safety Report 10426473 (Version 3)
Quarter: 2014Q4

REPORT INFORMATION
  Report Type: Report from Study
  Country: US (occurrence: US)
  Receive Date: 20140903
  Receipt Date: 20141110
  Transmission Date: 20150528
  Serious: Yes (Hospitalization, Other)
  Sender: FDA-Public Use
  Company Number: US-SA-2014SA118874

PATIENT
  Age: 1 Month
  Sex: Female

DRUGS (1)
  1. LANTUS [Suspect]
     Active Substance: INSULIN GLARGINE
     Indication: TYPE 2 DIABETES MELLITUS
     Dosage: DOSE:45 UNIT(S)
     Route: 065

REACTIONS (11)
  - Liver disorder [Unknown]
  - Atrioventricular block complete [Recovered/Resolved]
  - Brain injury [Recovered/Resolved]
  - Glycosylated haemoglobin increased [Unknown]
  - Haematoma [Recovered/Resolved]
  - Cardiac arrest [Recovered/Resolved]
  - Cardiovascular disorder [Recovered/Resolved]
  - Fall [Unknown]
  - Concussion [Recovered/Resolved]
  - Myocardial infarction [Unknown]
  - Blood glucose abnormal [Unknown]

NARRATIVE: CASE EVENT DATE: 201406
